FAERS Safety Report 22957842 (Version 2)
Quarter: 2023Q4

REPORT INFORMATION
  Report Type: Report from Study
  Country: US (occurrence: US)
  Receive Date: 20230919
  Receipt Date: 20231009
  Transmission Date: 20240110
  Serious: Yes (Hospitalization)
  Sender: FDA-Public Use
  Company Number: US-JNJFOC-20230922861

PATIENT
  Age: 1 Year
  Sex: Male
  Weight: 7.75 kg

DRUGS (9)
  1. TRACLEER [Suspect]
     Active Substance: BOSENTAN
     Indication: Pulmonary arterial hypertension
     Route: 048
     Dates: start: 20230809
  2. TRACLEER [Suspect]
     Active Substance: BOSENTAN
     Route: 048
     Dates: start: 20230809, end: 20230817
  3. IRON [FERROUS FUMARATE] [Concomitant]
     Route: 065
  4. ALBUTEROL [Concomitant]
     Active Substance: ALBUTEROL
  5. VITAMIN D3 [Concomitant]
     Active Substance: CHOLECALCIFEROL
     Dosage: 1 DROP DAILY BY MOUTH
  6. ENOXAPARIN [Concomitant]
     Active Substance: ENOXAPARIN
  7. FERROUS SULFATE [Concomitant]
     Active Substance: FERROUS SULFATE
  8. NYSTATIN [Concomitant]
     Active Substance: NYSTATIN
  9. SILDENAFIL [Concomitant]
     Active Substance: SILDENAFIL

REACTIONS (6)
  - Fluid retention [Unknown]
  - Drug hypersensitivity [Unknown]
  - Respiratory distress [Unknown]
  - Cyanosis [Unknown]
  - Adverse event [Unknown]
  - Off label use [Unknown]

NARRATIVE: CASE EVENT DATE: 20230810
